FAERS Safety Report 4548845-1 (Version None)
Quarter: 2005Q1

REPORT INFORMATION
  Report Type: 
  Country: None (occurrence: None)
  Receive Date: 20041227
  Receipt Date: 20041006
  Transmission Date: 20050727
  Serious: No
  Sender: FDA-Public Use
  Company Number: 04P-163-0276438-00

PATIENT
  Age: 58 Year
  Sex: Female
  Weight: 45.3597 kg

DRUGS (19)
  1. HUMIRA [Suspect]
     Indication: PSORIATIC ARTHROPATHY
     Dosage: 40 MG, 1 IN 2 WK, SUBCUTANEOUS
     Route: 058
     Dates: start: 20040607
  2. RISEDRONATE SODIUM [Concomitant]
  3. GABAPENTIN [Concomitant]
  4. IBUPROFEN [Concomitant]
  5. AXOTAL [Concomitant]
  6. FENTANYL [Concomitant]
  7. CARISOPRODOL [Concomitant]
  8. ALPRAZOLAM [Concomitant]
  9. FLUOXETINE HYDROCHLORIDE [Concomitant]
  10. FEXOFENADINE HYDROCHLORIDE [Concomitant]
  11. MONTELUKAST SODIUM [Concomitant]
  12. SERETIDE MITE [Concomitant]
  13. COMBIVENT [Concomitant]
  14. PILOCARPINE HYDROCHLORIDE [Concomitant]
  15. LEVOTHYROXINE SODIUM [Concomitant]
  16. PRAVASTATIN SODIUM [Concomitant]
  17. HYDROCORTISONE [Concomitant]
  18. TAZAROTENE [Concomitant]
  19. FLUOCINONIDE [Concomitant]

REACTIONS (4)
  - INJECTION SITE ERYTHEMA [None]
  - INJECTION SITE IRRITATION [None]
  - INJECTION SITE NODULE [None]
  - RASH MACULAR [None]
